FAERS Safety Report 11267922 (Version 1)
Quarter: 2015Q3

REPORT INFORMATION
  Report Type: Spontaneous
  Country: US (occurrence: US)
  Receive Date: 20150713
  Receipt Date: 20150713
  Transmission Date: 20151125
  Serious: No
  Sender: FDA-Public Use
  Company Number: US-TAKEDA-2014MPI000719

PATIENT
  Sex: Female
  Weight: 70 kg

DRUGS (3)
  1. VELCADE [Suspect]
     Active Substance: BORTEZOMIB
     Indication: PLASMA CELL MYELOMA
     Dosage: AS A PART OF CLINICAL TRIAL
     Route: 042
  2. VELCADE [Suspect]
     Active Substance: BORTEZOMIB
     Dosage: 2.5 MG/ML, 1/WEEK
     Route: 042
     Dates: start: 2004
  3. VELCADE [Suspect]
     Active Substance: BORTEZOMIB
     Dosage: 1 MG/ML, UNK
     Route: 058
     Dates: start: 20140306

REACTIONS (2)
  - Pain [Unknown]
  - Injection site reaction [Unknown]
